FAERS Safety Report 26056124 (Version 1)
Quarter: 2025Q4

REPORT INFORMATION
  Report Type: Spontaneous
  Country: US (occurrence: US)
  Receive Date: 20251118
  Receipt Date: 20251118
  Transmission Date: 20260117
  Serious: Yes (Life-Threatening)
  Sender: ACCORD
  Company Number: US-MLMSERVICE-20251030-PI690994-00246-3

PATIENT
  Age: 43 Year
  Sex: Female

DRUGS (4)
  1. ESCITALOPRAM [Suspect]
     Active Substance: ESCITALOPRAM OXALATE
  2. OLANZAPINE [Suspect]
     Active Substance: OLANZAPINE
  3. PHENAZOPYRIDINE [Suspect]
     Active Substance: PHENAZOPYRIDINE
  4. IBUPROFEN [Concomitant]
     Active Substance: IBUPROFEN

REACTIONS (2)
  - Methaemoglobinaemia [Recovered/Resolved]
  - Intentional overdose [Unknown]
